FAERS Safety Report 6675170-5 (Version None)
Quarter: 2010Q2

REPORT INFORMATION
  Report Type: 
  Country: None (occurrence: None)
  Receive Date: 20100409
  Receipt Date: 20100331
  Transmission Date: 20101027
  Serious: Yes (Life-Threatening, Hospitalization)
  Sender: FDA-Public Use
  Company Number: GXKR2010MA03797

PATIENT
  Age: 76 Year
  Sex: Female

DRUGS (3)
  1. PARACETAMOL (NGX) [Suspect]
     Indication: ARTHRALGIA
     Route: 065
  2. THIOCOLCHICOSIDE (NGX) [Suspect]
     Indication: ARTHRALGIA
  3. CELECOXIB [Suspect]
     Indication: ARTHRALGIA

REACTIONS (8)
  - MUCOSAL ULCERATION [None]
  - OLIGURIA [None]
  - PYREXIA [None]
  - RASH [None]
  - RENAL IMPAIRMENT [None]
  - STAPHYLOCOCCAL SEPSIS [None]
  - TACHYPNOEA [None]
  - TOXIC EPIDERMAL NECROLYSIS [None]
